FAERS Safety Report 24346040 (Version 1)
Quarter: 2024Q3

REPORT INFORMATION
  Report Type: Spontaneous
  Country: CA (occurrence: CA)
  Receive Date: 20240921
  Receipt Date: 20240921
  Transmission Date: 20241017
  Serious: Yes (Other)
  Sender: CELLTRION
  Company Number: CA-PFIZER INC-202400255479

PATIENT

DRUGS (2)
  1. INFLECTRA [Suspect]
     Active Substance: INFLIXIMAB-DYYB
     Indication: Colitis ulcerative
     Dosage: 1000 MG, EVERY 4 WEEKS
     Route: 042
  2. BUDESONIDE\FORMOTEROL FUMARATE [Suspect]
     Active Substance: BUDESONIDE\FORMOTEROL FUMARATE
     Dosage: UNK
     Route: 055

REACTIONS (13)
  - Pneumonia [Unknown]
  - Pulmonary congestion [Unknown]
  - Gastroenteritis [Unknown]
  - Drug ineffective [Unknown]
  - Burning sensation [Unknown]
  - Cough [Unknown]
  - Diarrhoea [Unknown]
  - Influenza [Unknown]
  - Nasopharyngitis [Unknown]
  - Nausea [Unknown]
  - Oropharyngeal pain [Unknown]
  - Sputum discoloured [Unknown]
  - Off label use [Unknown]
